FAERS Safety Report 11748165 (Version 1)
Quarter: 2015Q4

REPORT INFORMATION
  Report Type: Spontaneous
  Country: GB (occurrence: GB)
  Receive Date: 20151117
  Receipt Date: 20151117
  Transmission Date: 20160304
  Serious: Yes (Other)
  Sender: FDA-Public Use
  Company Number: PHHY2015GB144815

PATIENT
  Age: 38 Year
  Sex: Female
  Weight: 58.6 kg

DRUGS (1)
  1. CO-AMOXICLAV [Suspect]
     Active Substance: AMOXICILLIN\CLAVULANIC ACID
     Indication: PLEURISY
     Dosage: 250/125MG
     Route: 048
     Dates: start: 20140709, end: 20140712

REACTIONS (1)
  - Oesophageal spasm [Recovered/Resolved with Sequelae]

NARRATIVE: CASE EVENT DATE: 20140709
